FAERS Safety Report 4766412-1 (Version None)
Quarter: 2005Q3

REPORT INFORMATION
  Report Type: 
  Country: None (occurrence: None)
  Receive Date: 20050909
  Receipt Date: 20050831
  Transmission Date: 20060218
  Serious: Yes (Hospitalization)
  Sender: FDA-Public Use
  Company Number: 2005121509

PATIENT
  Age: 69 Year
  Sex: Female
  Weight: 84 kg

DRUGS (1)
  1. FRAGMIN [Suspect]
     Indication: KNEE ARTHROPLASTY
     Dosage: 5000 I.U. (1 IN 1 D), SUBCUTANEOUS
     Route: 058
     Dates: start: 20050816, end: 20050801

REACTIONS (2)
  - PAIN [None]
  - VENOUS THROMBOSIS LIMB [None]
